FAERS Safety Report 22258989 (Version 1)
Quarter: 2023Q2

REPORT INFORMATION
  Report Type: Report from Study
  Country: US (occurrence: US)
  Receive Date: 20230427
  Receipt Date: 20230427
  Transmission Date: 20230722
  Serious: Yes (Other)
  Sender: FDA-Public Use
  Company Number: US-002147023-NVSC2023US093296

PATIENT
  Age: 49 Year
  Sex: Female

DRUGS (2)
  1. TASIGNA [Suspect]
     Active Substance: NILOTINIB
     Indication: Chronic myeloid leukaemia
     Dosage: 300 MG, BID
     Route: 048
     Dates: start: 202209, end: 202301
  2. TASIGNA [Suspect]
     Active Substance: NILOTINIB
     Dosage: 400 MG
     Route: 065

REACTIONS (3)
  - Pericardial effusion [Unknown]
  - Fluid retention [Recovering/Resolving]
  - Pleural effusion [Unknown]

NARRATIVE: CASE EVENT DATE: 20220901
